FAERS Safety Report 14630439 (Version 1)
Quarter: 2018Q1

REPORT INFORMATION
  Report Type: Spontaneous
  Country: US (occurrence: US)
  Receive Date: 20180313
  Receipt Date: 20180313
  Transmission Date: 20180509
  Serious: Yes (Hospitalization)
  Sender: FDA-Public Use
  Company Number: None

PATIENT
  Age: 26 Year
  Sex: Female

DRUGS (12)
  1. ZORTRESS [Concomitant]
     Active Substance: EVEROLIMUS
  2. LEVALBUTEROL. [Concomitant]
     Active Substance: LEVALBUTEROL
  3. MEPHYTON [Concomitant]
     Active Substance: PHYTONADIONE
  4. TACROLIMUS. [Concomitant]
     Active Substance: TACROLIMUS
  5. URSODIOL. [Concomitant]
     Active Substance: URSODIOL
  6. ZENPEP [Suspect]
     Active Substance: PANCRELIPASE AMYLASE\PANCRELIPASE LIPASE\PANCRELIPASE PROTEASE
     Indication: CYSTIC FIBROSIS
     Dosage: 6 WITH MEALS, 3 WITH SNACKS PO
     Route: 048
     Dates: start: 20131126
  7. SODIUM CHLORIDE 3% [Suspect]
     Active Substance: SODIUM CHLORIDE
     Indication: CYSTIC FIBROSIS
     Dosage: 1 VIAL TWICE DAILY INHALED
     Route: 055
     Dates: start: 20131126
  8. PREDNISONE. [Concomitant]
     Active Substance: PREDNISONE
  9. NOVOLOG [Concomitant]
     Active Substance: INSULIN ASPART
  10. OMEPRAZOLE. [Concomitant]
     Active Substance: OMEPRAZOLE
  11. RANITIDINE. [Concomitant]
     Active Substance: RANITIDINE
  12. MYCOPHENOLATE [Concomitant]
     Active Substance: MYCOPHENOLIC ACID

REACTIONS (2)
  - Lung disorder [None]
  - Condition aggravated [None]

NARRATIVE: CASE EVENT DATE: 20180226
